FAERS Safety Report 16073567 (Version 2)
Quarter: 2019Q1

REPORT INFORMATION
  Report Type: Spontaneous
  Country: DE (occurrence: DE)
  Receive Date: 20190314
  Receipt Date: 20190314
  Transmission Date: 20190418
  Serious: Yes (Other)
  Sender: FDA-Public Use
  Company Number: PHHY2019DE055366

PATIENT
  Age: 4 Year
  Sex: Female

DRUGS (8)
  1. CICLOSPORIN [Suspect]
     Active Substance: CYCLOSPORINE
     Indication: BONE MARROW TRANSPLANT
     Dosage: FROM DAY 1
     Route: 065
  2. CICLOSPORIN [Suspect]
     Active Substance: CYCLOSPORINE
     Indication: IMMUNOSUPPRESSANT DRUG THERAPY
  3. METHOTREXATE. [Suspect]
     Active Substance: METHOTREXATE
     Indication: BONE MARROW TRANSPLANT
     Dosage: DAYS 1, 3 6
     Route: 065
  4. TACROLIMUS. [Suspect]
     Active Substance: TACROLIMUS
     Indication: IMMUNOSUPPRESSANT DRUG THERAPY
  5. METHOTREXATE. [Suspect]
     Active Substance: METHOTREXATE
     Indication: IMMUNOSUPPRESSANT DRUG THERAPY
  6. TACROLIMUS. [Suspect]
     Active Substance: TACROLIMUS
     Indication: BONE MARROW TRANSPLANT
     Route: 065
  7. CICLOSPORIN [Suspect]
     Active Substance: CYCLOSPORINE
     Indication: PROPHYLAXIS AGAINST GRAFT VERSUS HOST DISEASE
  8. METHOTREXATE. [Suspect]
     Active Substance: METHOTREXATE
     Indication: PROPHYLAXIS AGAINST GRAFT VERSUS HOST DISEASE

REACTIONS (14)
  - Adenovirus infection [Recovering/Resolving]
  - Product use in unapproved indication [Unknown]
  - Diarrhoea [Unknown]
  - Gastroenteritis adenovirus [Recovering/Resolving]
  - Pericardial effusion [Unknown]
  - Rash maculo-papular [Unknown]
  - Epstein-Barr virus infection [Unknown]
  - Posterior reversible encephalopathy syndrome [Unknown]
  - Engraftment syndrome [Unknown]
  - Pyrexia [Unknown]
  - Meningitis viral [Unknown]
  - General physical health deterioration [Unknown]
  - Encephalopathy [Unknown]
  - Herpes virus infection [Unknown]
